FAERS Safety Report 25807404 (Version 1)
Quarter: 2025Q3

REPORT INFORMATION
  Report Type: Spontaneous
  Country: US (occurrence: None)
  Receive Date: 20250916
  Receipt Date: 20250916
  Transmission Date: 20251020
  Serious: Yes (Death, Hospitalization)
  Sender: FDA-CTU
  Company Number: None

PATIENT
  Age: 80 Year
  Sex: Male
  Weight: 73 kg

DRUGS (3)
  1. APIXABAN [Suspect]
     Active Substance: APIXABAN
     Indication: Cerebrovascular accident prophylaxis
     Dosage: 2.5 MG BID PO
     Route: 048
     Dates: start: 20231101, end: 20250311
  2. ASPIRIN [Suspect]
     Active Substance: ASPIRIN
     Dosage: FREQUENCY : DAILY;?
     Route: 048
     Dates: end: 20250311
  3. NAPROXEN [Suspect]
     Active Substance: NAPROXEN

REACTIONS (4)
  - Blood loss anaemia [None]
  - Gastrointestinal haemorrhage [None]
  - Acute kidney injury [None]
  - Hypervolaemia [None]

NARRATIVE: CASE EVENT DATE: 20250311
